FAERS Safety Report 8136377 (Version 3)
Quarter: 2013Q3

REPORT INFORMATION
  Report Type: Report from Study
  Country: DE (occurrence: DE)
  Receive Date: 20110914
  Receipt Date: 20130813
  Transmission Date: 20140515
  Serious: Yes (Hospitalization, Other)
  Sender: FDA-Public Use
  Company Number: DE-ABBOTT-11P-062-0853611-00

PATIENT
  Age: 56 Year
  Sex: Female
  Weight: 45 kg

DRUGS (5)
  1. HUMIRA 40 MG/ 0.8 ML PRE-FILLED SYRINGE [Suspect]
     Indication: CROHN^S DISEASE
     Route: 058
     Dates: start: 20081118, end: 201206
  2. HUMIRA 40 MG/ 0.8 ML PRE-FILLED SYRINGE [Suspect]
  3. BUDESONID [Concomitant]
     Indication: CROHN^S DISEASE
  4. METOCLOPRAMID [Concomitant]
     Indication: CROHN^S DISEASE
     Route: 048
  5. PANTOPRAZOL [Concomitant]
     Indication: PRODUCT USED FOR UNKNOWN INDICATION
     Dosage: 40 MG DAILY
     Dates: start: 20110821, end: 20110901

REACTIONS (5)
  - Intestinal stenosis [Unknown]
  - Subileus [Recovered/Resolved]
  - Anastomotic stenosis [Recovered/Resolved]
  - Subileus [Recovered/Resolved]
  - Crohn^s disease [Recovering/Resolving]
